FAERS Safety Report 9128534 (Version 3)
Quarter: 2013Q1

REPORT INFORMATION
  Report Type: Report from Study
  Country: FR (occurrence: FR)
  Receive Date: 20130228
  Receipt Date: 20130311
  Transmission Date: 20140127
  Serious: Yes (Hospitalization)
  Sender: FDA-Public Use
  Company Number: FR-ROCHE-1195342

PATIENT
  Age: 84 Year
  Sex: Female
  Weight: 87 kg

DRUGS (11)
  1. RITUXIMAB [Suspect]
     Indication: CHRONIC LYMPHOCYTIC LEUKAEMIA
     Dosage: 500 MG/M2, DATE OF LAST DOSE PRIOR TO SAE:10 SEP 2012
     Route: 042
     Dates: start: 20120424
  2. CHLORAMBUCIL [Suspect]
     Indication: CHRONIC LYMPHOCYTIC LEUKAEMIA
     Dosage: DATE OF LAST DOSE PRIOR TO SAE:16 SEP 2012
     Route: 048
     Dates: start: 20120424
  3. PARACETAMOL [Concomitant]
     Route: 065
     Dates: start: 20130202
  4. PREVISCAN (FRANCE) [Concomitant]
     Dosage: 0.75 CAP
     Route: 065
     Dates: start: 20091113
  5. RAMIPRIL [Concomitant]
     Route: 065
     Dates: start: 20130202
  6. TEMERIT [Concomitant]
     Route: 065
     Dates: start: 20120214
  7. HUMAN IMMUNOGLOBULIN [Concomitant]
     Route: 065
     Dates: start: 20120227
  8. LASILIX [Concomitant]
     Route: 065
     Dates: start: 20091113
  9. CORDARONE [Concomitant]
     Route: 065
     Dates: start: 20120214
  10. AMLOR [Concomitant]
     Route: 065
     Dates: start: 20120213
  11. FUROSEMIDE [Concomitant]
     Route: 065
     Dates: start: 20130202

REACTIONS (1)
  - Asthma [Not Recovered/Not Resolved]
